FAERS Safety Report 11872109 (Version 2)
Quarter: 2017Q4

REPORT INFORMATION
  Report Type: Spontaneous
  Country: CA (occurrence: CA)
  Receive Date: 20151228
  Receipt Date: 20171124
  Transmission Date: 20180320
  Serious: Yes (Other)
  Sender: FDA-Public Use
  Company Number: PHHY2015CA169688

PATIENT
  Age: 39 Year
  Sex: Female

DRUGS (1)
  1. LABETALOL [Suspect]
     Active Substance: LABETALOL\LABETALOL HYDROCHLORIDE
     Indication: PRODUCT USED FOR UNKNOWN INDICATION
     Route: 065
     Dates: start: 2002

REACTIONS (2)
  - Maternal exposure during pregnancy [Unknown]
  - Eosinophilic pneumonia [Unknown]

NARRATIVE: CASE EVENT DATE: 2002
